FAERS Safety Report 8243704-5 (Version None)
Quarter: 2012Q1

REPORT INFORMATION
  Report Type: 
  Country: None (occurrence: None)
  Receive Date: 20120329
  Receipt Date: 20110311
  Transmission Date: 20120608
  Serious: No
  Sender: FDA-Public Use
  Company Number: US-MYLANLABS-2011S1003108

PATIENT
  Age: 44 Year
  Sex: Female
  Weight: 67.13 kg

DRUGS (7)
  1. EMSAM [Suspect]
     Dosage: QD
     Route: 062
     Dates: start: 20101201, end: 20110211
  2. KLONOPIN [Concomitant]
     Indication: ANXIETY
  3. RESTORIL [Concomitant]
     Indication: INSOMNIA
  4. EMSAM [Suspect]
     Indication: BIPOLAR DISORDER
     Dosage: QD
     Route: 062
     Dates: start: 20101201, end: 20110211
  5. ABILIFY [Concomitant]
  6. EMSAM [Suspect]
     Indication: DEPRESSION
     Dosage: QD
     Route: 062
     Dates: start: 20101201, end: 20110211
  7. EMSAM [Suspect]
     Dosage: QD
     Route: 062
     Dates: start: 20101201, end: 20110211

REACTIONS (3)
  - WEIGHT INCREASED [None]
  - APPLICATION SITE RASH [None]
  - ABDOMINAL DISCOMFORT [None]
